FAERS Safety Report 5048463-5 (Version None)
Quarter: 2006Q3

REPORT INFORMATION
  Report Type: 
  Country: None (occurrence: None)
  Receive Date: 20060705
  Receipt Date: 20060613
  Transmission Date: 20061208
  Serious: Yes (Hospitalization)
  Sender: FDA-Public Use
  Company Number: FR200603002747

PATIENT
  Age: 77 Year
  Sex: Female

DRUGS (13)
  1. FORSTEO(TERIPARATIDE) PEN,DISPOSABLE [Suspect]
     Indication: OSTEOPOROSIS
     Dosage: 20 UG, DAILY (1/D), SUBCUTANEOUS
     Route: 058
     Dates: start: 20050928
  2. FORTEO PEN (FORTEO PEN) [Concomitant]
  3. SECTRAL [Concomitant]
  4. PREDNISONE TAB [Concomitant]
  5. STRUCTUM (CHONDROITIN SULFATE SODIUM) [Concomitant]
  6. PREVISCAN (FLUINDIONE) [Concomitant]
  7. AMLODIPINE BESYLATE [Concomitant]
  8. EUPRESSYL (URAPIDIL) [Concomitant]
  9. ASPIRIN [Concomitant]
  10. VASTAREL (TRIMETAZIDINE HYDROCHLORIDE) [Concomitant]
  11. ESOMEPRAZOLE (ESOMEPRAZOLE) [Concomitant]
  12. LASIX [Concomitant]
  13. CACIT D3 (CALCIUM CARBONATE, COLECALCIFEROL) [Concomitant]

REACTIONS (5)
  - ESCHERICHIA SEPSIS [None]
  - FALL [None]
  - MALAISE [None]
  - PYELONEPHRITIS ACUTE [None]
  - WRIST FRACTURE [None]
